FAERS Safety Report 7560239-3 (Version None)
Quarter: 2011Q2

REPORT INFORMATION
  Report Type: 
  Country: None (occurrence: None)
  Receive Date: 20110621
  Receipt Date: 20110613
  Transmission Date: 20111010
  Serious: No
  Sender: FDA-Public Use
  Company Number: JP-CTI_01360_2011

PATIENT
  Sex: Male

DRUGS (1)
  1. MEIACT MS (CEFDITOREN PIVOXIL) [Suspect]
     Indication: PHARYNGITIS
     Dosage: ONCE
     Route: 048
     Dates: start: 20110521, end: 20110521

REACTIONS (9)
  - ABDOMINAL PAIN [None]
  - BLOOD PRESSURE IMMEASURABLE [None]
  - EMOTIONAL DISTRESS [None]
  - PALLOR [None]
  - ANAPHYLACTIC SHOCK [None]
  - DISCOMFORT [None]
  - PAIN [None]
  - PULSE PRESSURE DECREASED [None]
  - GAIT DISTURBANCE [None]
